FAERS Safety Report 21541089 (Version 1)
Quarter: 2022Q4

REPORT INFORMATION
  Report Type: Report from Study
  Country: LB (occurrence: LB)
  Receive Date: 20221102
  Receipt Date: 20221102
  Transmission Date: 20230113
  Serious: Yes (Other)
  Sender: FDA-Public Use
  Company Number: LB-NOVARTISPH-NVSC2022LB106280

PATIENT
  Age: 77 Year
  Sex: Female
  Weight: 72 kg

DRUGS (5)
  1. KISQALI [Suspect]
     Active Substance: RIBOCICLIB
     Indication: Breast cancer
     Dosage: 3 DOSAGE FORM, QD
     Route: 048
     Dates: start: 20190501, end: 202203
  2. KISQALI [Suspect]
     Active Substance: RIBOCICLIB
     Dosage: 3 DOSAGE FORM, QD
     Route: 048
     Dates: start: 202208
  3. FEMARA [Suspect]
     Active Substance: LETROZOLE
     Indication: Breast cancer
     Dosage: 1 DOSAGE FORM, QD
     Route: 048
     Dates: start: 202111, end: 202204
  4. FEMARA [Suspect]
     Active Substance: LETROZOLE
     Dosage: 1 DOSAGE FORM, QD
     Route: 048
     Dates: start: 202208
  5. PANADOL [Concomitant]
     Active Substance: ACETAMINOPHEN
     Indication: Product used for unknown indication
     Dosage: UNK
     Route: 065

REACTIONS (5)
  - Kidney infection [Unknown]
  - Pain [Not Recovered/Not Resolved]
  - Product availability issue [Unknown]
  - Hypoaesthesia [Not Recovered/Not Resolved]
  - Influenza [Not Recovered/Not Resolved]

NARRATIVE: CASE EVENT DATE: 20220301
